FAERS Safety Report 17397403 (Version 1)
Quarter: 2020Q1

REPORT INFORMATION
  Report Type: Spontaneous
  Country: CN (occurrence: CN)
  Receive Date: 20200210
  Receipt Date: 20200210
  Transmission Date: 20200409
  Serious: Yes (Other)
  Sender: FDA-Public Use
  Company Number: NVSC2020CN034172

PATIENT
  Age: 31 Year
  Sex: Male
  Weight: 60 kg

DRUGS (1)
  1. TEGRETOL [Suspect]
     Active Substance: CARBAMAZEPINE
     Indication: EPILEPSY
     Dosage: 0.1 G, TID
     Route: 048
     Dates: start: 20200114, end: 20200117

REACTIONS (3)
  - Rash [Unknown]
  - Skin ulcer [Unknown]
  - Pruritus [Unknown]

NARRATIVE: CASE EVENT DATE: 20200117
